FAERS Safety Report 24711198 (Version 1)
Quarter: 2024Q4

REPORT INFORMATION
  Report Type: Spontaneous
  Country: FR (occurrence: FR)
  Receive Date: 20241209
  Receipt Date: 20241209
  Transmission Date: 20250115
  Serious: Yes (Hospitalization, Other)
  Sender: Steriscience PTE
  Company Number: FR-STERISCIENCE B.V.-2024-ST-002065

PATIENT
  Age: 77 Year
  Sex: Male
  Weight: 78 kg

DRUGS (3)
  1. MEROPENEM [Suspect]
     Active Substance: MEROPENEM
     Indication: Enterobacter infection
     Dosage: INFUSION OF MEROPENEM 2G EVERY 8 HOURS OVER 3HOUR
     Route: 065
  2. AMIKACIN [Suspect]
     Active Substance: AMIKACIN
     Indication: Enterobacter infection
     Dosage: 30 MILLIGRAM/KILOGRAM, SINGLE DOSE
     Route: 065
  3. ERTAPENEM [Concomitant]
     Active Substance: ERTAPENEM
     Indication: Enterobacter infection
     Dosage: 1 GRAM, BID
     Route: 065

REACTIONS (2)
  - Neurotoxicity [Unknown]
  - Treatment failure [Unknown]
